FAERS Safety Report 5170595-1 (Version None)
Quarter: 2006Q4

REPORT INFORMATION
  Report Type: 
  Country: None (occurrence: None)
  Receive Date: 20061205
  Receipt Date: 20061123
  Transmission Date: 20070319
  Serious: Yes (Hospitalization)
  Sender: FDA-Public Use
  Company Number: DE-2006-030069

PATIENT
  Age: 40 Year
  Sex: Male
  Weight: 74.3 kg

DRUGS (7)
  1. MAGNEVIST [Suspect]
     Indication: NUCLEAR MAGNETIC RESONANCE IMAGING
     Dosage: SEE IMAGE
     Dates: start: 20000905, end: 20000905
  2. MAGNEVIST [Suspect]
     Indication: NUCLEAR MAGNETIC RESONANCE IMAGING
     Dosage: SEE IMAGE
     Dates: start: 20040622, end: 20040622
  3. MAGNEVIST [Suspect]
     Indication: NUCLEAR MAGNETIC RESONANCE IMAGING
     Dosage: SEE IMAGE
     Dates: start: 20050128, end: 20050128
  4. MAGNEVIST [Suspect]
     Indication: NUCLEAR MAGNETIC RESONANCE IMAGING
     Dosage: SEE IMAGE
     Dates: start: 20060222, end: 20060222
  5. MAGNEVIST [Suspect]
     Indication: NUCLEAR MAGNETIC RESONANCE IMAGING
     Dosage: SEE IMAGE
     Dates: start: 20060328, end: 20060328
  6. MAGNEVIST [Suspect]
     Indication: NUCLEAR MAGNETIC RESONANCE IMAGING
     Dosage: SEE IMAGE
     Dates: start: 20060505, end: 20060505
  7. MAGNEVIST [Suspect]
     Indication: NUCLEAR MAGNETIC RESONANCE IMAGING
     Dosage: SEE IMAGE
     Dates: start: 20060623, end: 20060623

REACTIONS (11)
  - ANAEMIA [None]
  - COUGH [None]
  - GENERAL PHYSICAL HEALTH DETERIORATION [None]
  - MOBILITY DECREASED [None]
  - MYOPATHY [None]
  - NEPHROGENIC FIBROSING DERMOPATHY [None]
  - OEDEMA PERIPHERAL [None]
  - PAIN IN EXTREMITY [None]
  - PERITONEAL DIALYSIS [None]
  - POLYNEUROPATHY [None]
  - SCLERODERMA [None]
